FAERS Safety Report 11773066 (Version 5)
Quarter: 2016Q2

REPORT INFORMATION
  Report Type: Spontaneous
  Country: JP (occurrence: JP)
  Receive Date: 20151124
  Receipt Date: 20160401
  Transmission Date: 20160815
  Serious: Yes (Hospitalization, Other)
  Sender: FDA-Public Use
  Company Number: JP-ASTRAZENECA-2015SF18037

PATIENT
  Age: 32086 Day
  Sex: Female

DRUGS (9)
  1. FEBURIC [Concomitant]
     Active Substance: FEBUXOSTAT
     Route: 048
     Dates: start: 20150905
  2. FERROMIA [Concomitant]
     Active Substance: FERROUS CITRATE
     Indication: MICROCYTIC ANAEMIA
     Route: 048
     Dates: start: 20151204
  3. WARFARIN [Concomitant]
     Active Substance: WARFARIN
     Indication: DEEP VEIN THROMBOSIS
     Route: 048
     Dates: start: 20151220
  4. LANSOPRAZOLE. [Concomitant]
     Active Substance: LANSOPRAZOLE
     Indication: GASTRODUODENAL ULCER
     Route: 048
     Dates: start: 20150919
  5. DIART [Concomitant]
     Active Substance: AZOSEMIDE
     Indication: CARDIAC FAILURE CONGESTIVE
     Route: 048
     Dates: start: 20140609
  6. ARIMIDEX [Suspect]
     Active Substance: ANASTROZOLE
     Indication: BREAST CANCER FEMALE
     Route: 048
     Dates: start: 20150930, end: 20160104
  7. SAMSCA [Concomitant]
     Active Substance: TOLVAPTAN
     Indication: CARDIAC FAILURE CONGESTIVE
     Route: 048
     Dates: start: 20150901
  8. DONEPEZIL HYDROCHLORIDE. [Concomitant]
     Active Substance: DONEPEZIL HYDROCHLORIDE
     Route: 048
     Dates: start: 20151209
  9. WARFARIN [Concomitant]
     Active Substance: WARFARIN
     Indication: DEEP VEIN THROMBOSIS
     Route: 048
     Dates: end: 20160121

REACTIONS (5)
  - Deep vein thrombosis [Recovering/Resolving]
  - Cardiac failure [Recovering/Resolving]
  - Subdural haematoma [Recovered/Resolved]
  - Interstitial lung disease [Recovering/Resolving]
  - Anaemia macrocytic [Unknown]

NARRATIVE: CASE EVENT DATE: 20151107
